FAERS Safety Report 6725336-0 (Version None)
Quarter: 2010Q2

REPORT INFORMATION
  Report Type: 
  Country: None (occurrence: None)
  Receive Date: 20100513
  Receipt Date: 20100513
  Transmission Date: 20101027
  Serious: Yes (Other)
  Sender: FDA-Public Use
  Company Number: None

PATIENT
  Sex: Female
  Weight: 61.2356 kg

DRUGS (1)
  1. FLUTICASONE PROPIONATE [Suspect]
     Indication: NASAL DISCOMFORT
     Dosage: TWICE A DAY
     Dates: start: 20100415

REACTIONS (2)
  - EPISTAXIS [None]
  - HEADACHE [None]
